FAERS Safety Report 6003755-8 (Version None)
Quarter: 2008Q4

REPORT INFORMATION
  Report Type: 
  Country: None (occurrence: None)
  Receive Date: 20081216
  Receipt Date: 20081203
  Transmission Date: 20090506
  Serious: Yes (Disabling)
  Sender: FDA-Public Use
  Company Number: PHHY2008CA28147

PATIENT
  Sex: Female

DRUGS (1)
  1. ZOLEDRONIC ACID [Suspect]
     Indication: OSTEOPOROSIS POSTMENOPAUSAL
     Dosage: UNK

REACTIONS (1)
  - MIGRAINE [None]
